FAERS Safety Report 5807805-0 (Version None)
Quarter: 2008Q3

REPORT INFORMATION
  Report Type: 
  Country: None (occurrence: None)
  Receive Date: 20080711
  Receipt Date: 20080623
  Transmission Date: 20090109
  Serious: No
  Sender: FDA-Public Use
  Company Number: US-BOEHRINGER INGELHEIM GMBH, GERMANY-2008-BP-09753BP

PATIENT
  Sex: Female

DRUGS (2)
  1. CATAPRES-TTS-1 [Suspect]
     Indication: HYPERTENSION
     Route: 061
     Dates: start: 19960101
  2. CATAPRES-TTS-1 [Suspect]
     Indication: CONVULSION

REACTIONS (6)
  - APPLICATION SITE ERYTHEMA [None]
  - DIZZINESS [None]
  - HEADACHE [None]
  - INSOMNIA [None]
  - PAIN [None]
  - TREMOR [None]
